FAERS Safety Report 19688615 (Version 1)
Quarter: 2021Q3

REPORT INFORMATION
  Report Type: Spontaneous
  Country: US (occurrence: US)
  Receive Date: 20210812
  Receipt Date: 20210812
  Transmission Date: 20211014
  Serious: No
  Sender: FDA-Public Use
  Company Number: US-COLGATE PALMOLIVE COMPANY-20201102230

PATIENT
  Sex: Male

DRUGS (1)
  1. COLGATE TOTAL ADVANCED WHITENING [Suspect]
     Active Substance: SODIUM FLUORIDE\TRICLOSAN

REACTIONS (2)
  - Eye irritation [Recovering/Resolving]
  - Accidental exposure to product [Unknown]

NARRATIVE: CASE EVENT DATE: 20201116
